FAERS Safety Report 20243934 (Version 2)
Quarter: 2025Q2

REPORT INFORMATION
  Report Type: Spontaneous
  Country: US (occurrence: US)
  Receive Date: 20211228
  Receipt Date: 20250625
  Transmission Date: 20250717
  Serious: Yes (Life-Threatening, Hospitalization, Other)
  Sender: AUROBINDO
  Company Number: US-MLMSERVICE-20211209-3265733-1

PATIENT
  Age: 72 Year
  Sex: Male

DRUGS (8)
  1. LEVOFLOXACIN [Suspect]
     Active Substance: LEVOFLOXACIN
     Indication: Pneumonia
     Route: 065
  2. PREDNISONE [Suspect]
     Active Substance: PREDNISONE
     Indication: Acute respiratory failure
     Dosage: 1 MILLIGRAM/KILOGRAM, ONCE A DAY(80 MG)
     Route: 048
  3. PREDNISONE [Suspect]
     Active Substance: PREDNISONE
     Indication: Organising pneumonia
  4. VANCOMYCIN [Suspect]
     Active Substance: VANCOMYCIN
     Indication: Arthritis bacterial
     Route: 042
  5. APIXABAN [Suspect]
     Active Substance: APIXABAN
     Indication: Atrial fibrillation
     Route: 065
  6. OXYGEN [Concomitant]
     Active Substance: OXYGEN
     Indication: Respiratory failure
     Route: 065
  7. OXYGEN [Concomitant]
     Active Substance: OXYGEN
     Route: 065
  8. OXYGEN [Concomitant]
     Active Substance: OXYGEN
     Route: 065

REACTIONS (3)
  - Drug ineffective [Recovered/Resolved]
  - Delirium [Recovered/Resolved]
  - Substance-induced psychotic disorder [Recovered/Resolved]
